FAERS Safety Report 12382515 (Version 1)
Quarter: 2016Q2

REPORT INFORMATION
  Report Type: Report from Study
  Country: US (occurrence: US)
  Receive Date: 20160518
  Receipt Date: 20160518
  Transmission Date: 20160815
  Serious: No
  Sender: FDA-Public Use
  Company Number: US-MALLINCKRODT-T201503418

PATIENT
  Age: 56 Year
  Sex: Female
  Weight: 91 kg

DRUGS (3)
  1. REPOSITORY CORTICOTROPIN INJECTION [Suspect]
     Active Substance: CORTICOTROPIN
     Dosage: 80 UNITS TWICE A WEEK
     Route: 065
  2. REPOSITORY CORTICOTROPIN INJECTION [Suspect]
     Active Substance: CORTICOTROPIN
     Indication: RHEUMATOID ARTHRITIS
     Dosage: 80 UNITS THREE TIMES A WEEK
     Route: 030
     Dates: start: 201504, end: 201506
  3. REPOSITORY CORTICOTROPIN INJECTION [Suspect]
     Active Substance: CORTICOTROPIN
     Dosage: INCREASED DOSING (UNSPECIFIED)
     Route: 030
     Dates: start: 201506, end: 201506

REACTIONS (7)
  - Hyperhidrosis [Recovered/Resolved]
  - Injection site pain [Unknown]
  - Oedema peripheral [Recovered/Resolved]
  - Hypersensitivity [Unknown]
  - Middle ear effusion [Recovered/Resolved]
  - Hot flush [Recovered/Resolved]
  - Fatigue [Recovered/Resolved]

NARRATIVE: CASE EVENT DATE: 201505
